FAERS Safety Report 10710229 (Version 3)
Quarter: 2015Q1

REPORT INFORMATION
  Report Type: Spontaneous
  Country: FR (occurrence: None)
  Receive Date: 20150112
  Receipt Date: 20150209
  Transmission Date: 20150721
  Serious: Yes (Hospitalization, Disabling)
  Sender: FDA-Public Use
  Company Number: AXC-2014-000802

PATIENT
  Age: 57 Year
  Sex: Male

DRUGS (5)
  1. OMEPRAZOLE. [Concomitant]
     Active Substance: OMEPRAZOLE
  2. INTELENCE (ETRAVIRINE) [Concomitant]
  3. PYLERA [Suspect]
     Active Substance: BISMUTH SUBCITRATE POTASSIUM\METRONIDAZOLE\TETRACYCLINE HYDROCHLORIDE
     Indication: HELICOBACTER GASTRITIS
     Dosage: 3 CAPS QID, ORAL
     Route: 048
     Dates: start: 20131001, end: 20131010
  4. KIVEXA (ABACAVIR SULFATE, LAMIVUDINE) [Concomitant]
  5. ISENTRESS [Concomitant]
     Active Substance: RALTEGRAVIR POTASSIUM

REACTIONS (15)
  - Pain in extremity [None]
  - Weight decreased [None]
  - Diarrhoea [None]
  - Ataxia [None]
  - Dysphagia [None]
  - Abasia [None]
  - Visual acuity reduced [None]
  - Encephalitis [None]
  - Paraesthesia [None]
  - Monoplegia [None]
  - Myelitis [None]
  - Fall [None]
  - Spinal vascular disorder [None]
  - Dysuria [None]
  - Inappropriate schedule of drug administration [None]

NARRATIVE: CASE EVENT DATE: 2013
